FAERS Safety Report 6671358-8 (Version None)
Quarter: 2010Q2

REPORT INFORMATION
  Report Type: 
  Country: None (occurrence: None)
  Receive Date: 20100406
  Receipt Date: 20100406
  Transmission Date: 20101027
  Serious: Yes (Hospitalization)
  Sender: FDA-Public Use
  Company Number: None

PATIENT
  Sex: Male

DRUGS (1)
  1. ZOSYN [Suspect]
     Indication: INFECTION
     Dosage: IV DRIP
     Route: 041
     Dates: start: 20100310, end: 20100313

REACTIONS (1)
  - TUBULOINTERSTITIAL NEPHRITIS [None]
